FAERS Safety Report 18847130 (Version 2)
Quarter: 2021Q3

REPORT INFORMATION
  Report Type: Spontaneous
  Country: US (occurrence: US)
  Receive Date: 20210204
  Receipt Date: 20210823
  Transmission Date: 20211014
  Serious: Yes (Hospitalization)
  Sender: FDA-Public Use
  Company Number: US-PFIZER INC-2021085802

PATIENT
  Age: 58 Year
  Sex: Female
  Weight: 82.09 kg

DRUGS (1)
  1. XELJANZ [Suspect]
     Active Substance: TOFACITINIB CITRATE
     Indication: RHEUMATOID ARTHRITIS
     Dosage: 5 MG, 2X/DAY
     Route: 048
     Dates: start: 202010

REACTIONS (3)
  - Swelling [Unknown]
  - Staphylococcal infection [Unknown]
  - Weight increased [Unknown]

NARRATIVE: CASE EVENT DATE: 20210707
